FAERS Safety Report 10813687 (Version 1)
Quarter: 2015Q1

REPORT INFORMATION
  Report Type: Spontaneous
  Country: CN (occurrence: CN)
  Receive Date: 20150218
  Receipt Date: 20150218
  Transmission Date: 20150721
  Serious: Yes (Other)
  Sender: FDA-Public Use
  Company Number: CN-ELI_LILLY_AND_COMPANY-CN201502004981

PATIENT
  Sex: Female

DRUGS (7)
  1. HUMALOG [Suspect]
     Active Substance: INSULIN LISPRO
     Dosage: 6 DF, EACH EVENING
     Route: 058
     Dates: start: 20141224
  2. HUMALOG [Suspect]
     Active Substance: INSULIN LISPRO
     Dosage: 6 DF, EACH EVENING
     Route: 058
     Dates: start: 20141018, end: 201411
  3. HUMALOG [Suspect]
     Active Substance: INSULIN LISPRO
     Dosage: 8 DF, EACH MORNING
     Route: 058
     Dates: start: 20141224
  4. METFORMIN [Suspect]
     Active Substance: METFORMIN HYDROCHLORIDE
     Indication: DIABETES MELLITUS
     Dosage: 2 DF, EACH MORNING
     Route: 048
     Dates: start: 20141018, end: 20141223
  5. HUMALOG [Suspect]
     Active Substance: INSULIN LISPRO
     Indication: DIABETES MELLITUS
     Dosage: 8 DF, EACH MORNING
     Route: 058
     Dates: start: 20141018, end: 201411
  6. ACARBOSE. [Suspect]
     Active Substance: ACARBOSE
     Indication: DIABETES MELLITUS
     Dosage: 1 DF, QD
     Route: 048
     Dates: start: 20141018, end: 20141223
  7. METFORMIN [Suspect]
     Active Substance: METFORMIN HYDROCHLORIDE
     Dosage: 2 DF, EACH EVENING
     Route: 048
     Dates: start: 20141018, end: 20141223

REACTIONS (3)
  - Abortion spontaneous [Unknown]
  - Maternal exposure before pregnancy [Recovered/Resolved]
  - Injection site haemorrhage [Unknown]

NARRATIVE: CASE EVENT DATE: 20150211
